FAERS Safety Report 8951120 (Version 1)
Quarter: 2012Q4

REPORT INFORMATION
  Report Type: 
  Country: GB (occurrence: GB)
  Receive Date: 20121207
  Receipt Date: 20121207
  Transmission Date: 20130627
  Serious: Yes (Hospitalization, Disabling)
  Sender: FDA-Public Use
  Company Number: GB-SANOFI-AVENTIS-2012SA087074

PATIENT
  Sex: Female
  Weight: 73 kg

DRUGS (9)
  1. MULTAQ [Suspect]
     Indication: PAROXYSMAL ATRIAL FIBRILLATION
     Route: 048
     Dates: start: 20101204, end: 201106
  2. RAMIPRIL [Concomitant]
  3. THYROXINE SODIUM [Concomitant]
  4. OMEPRAZOLE [Concomitant]
  5. FUROSEMIDE [Concomitant]
  6. BISOPROLOL [Concomitant]
  7. SPIRONOLACTONE [Concomitant]
  8. SIMVASTATIN [Concomitant]
  9. SALBUTAMOL [Concomitant]

REACTIONS (2)
  - Bundle branch block left [Unknown]
  - Cardiac failure [Not Recovered/Not Resolved]
